FAERS Safety Report 7078717-2 (Version None)
Quarter: 2010Q4

REPORT INFORMATION
  Report Type: 
  Country: None (occurrence: None)
  Receive Date: 20101101
  Receipt Date: 20101101
  Transmission Date: 20110411
  Serious: No
  Sender: FDA-Public Use
  Company Number: None

PATIENT
  Age: 30 Year
  Sex: Female
  Weight: 54.4316 kg

DRUGS (1)
  1. GABAPENTIN [Suspect]
     Dates: start: 20080910, end: 20090501

REACTIONS (4)
  - IMPAIRED DRIVING ABILITY [None]
  - LOSS OF EMPLOYMENT [None]
  - NO THERAPEUTIC RESPONSE [None]
  - VISION BLURRED [None]
